FAERS Safety Report 16919211 (Version 3)
Quarter: 2019Q4

REPORT INFORMATION
  Report Type: Spontaneous
  Country: US (occurrence: US)
  Receive Date: 20191015
  Receipt Date: 20191105
  Transmission Date: 20200122
  Serious: No
  Sender: FDA-Public Use
  Company Number: US-PFIZER INC-2019372047

PATIENT
  Age: 78 Year
  Sex: Female
  Weight: 56.69 kg

DRUGS (5)
  1. LYRICA [Suspect]
     Active Substance: PREGABALIN
     Indication: PLANTAR FASCIITIS
  2. LYRICA [Suspect]
     Active Substance: PREGABALIN
     Indication: RESTLESS LEGS SYNDROME
  3. LYRICA [Suspect]
     Active Substance: PREGABALIN
     Indication: POLYNEUROPATHY
     Dosage: 300 MG, 1X/DAY
     Route: 048
     Dates: start: 20190905
  4. LYRICA [Suspect]
     Active Substance: PREGABALIN
     Indication: SCOLIOSIS
  5. LYRICA [Suspect]
     Active Substance: PREGABALIN
     Indication: PAIN

REACTIONS (4)
  - Headache [Unknown]
  - Withdrawal syndrome [Recovered/Resolved]
  - Nausea [Unknown]
  - Tremor [Unknown]
